FAERS Safety Report 6818204-7 (Version None)
Quarter: 2010Q3

REPORT INFORMATION
  Report Type: 
  Country: None (occurrence: None)
  Receive Date: 20100706
  Receipt Date: 20070710
  Transmission Date: 20110219
  Serious: No
  Sender: FDA-Public Use
  Company Number: US-PFIZER INC-2007056751

PATIENT
  Sex: Female

DRUGS (3)
  1. ZITHROMAX [Suspect]
     Indication: DERMATITIS ATOPIC
     Route: 048
     Dates: start: 20060101, end: 20060101
  2. CORTISONE [Concomitant]
     Indication: HYPERSENSITIVITY
     Route: 030
  3. ANTIBIOTICS [Concomitant]
     Indication: INFECTION
     Route: 030

REACTIONS (2)
  - ADVERSE DRUG REACTION [None]
  - RASH [None]
